FAERS Safety Report 4649695-8 (Version None)
Quarter: 2005Q2

REPORT INFORMATION
  Report Type: 
  Country: None (occurrence: None)
  Receive Date: 20050502
  Receipt Date: 20050422
  Transmission Date: 20051028
  Serious: Yes (Hospitalization)
  Sender: FDA-Public Use
  Company Number: US-BOEHRINGER INGELHEIM PHARMACEUTICALS, INC.-2005-BP-06677BP

PATIENT
  Age: 83 Year
  Sex: Male

DRUGS (2)
  1. FLOMAX [Suspect]
     Indication: BENIGN PROSTATIC HYPERPLASIA
     Route: 048
     Dates: start: 20020101
  2. WARFARIN SODIUM [Concomitant]
     Indication: ATRIAL FIBRILLATION

REACTIONS (4)
  - DIZZINESS [None]
  - URINARY RETENTION [None]
  - URINARY TRACT INFECTION [None]
  - URINE FLOW DECREASED [None]
